FAERS Safety Report 11578929 (Version 1)
Quarter: 2015Q3

REPORT INFORMATION
  Report Type: Report from Study
  Country: US (occurrence: US)
  Receive Date: 20150930
  Receipt Date: 20150930
  Transmission Date: 20151125
  Serious: No
  Sender: FDA-Public Use
  Company Number: US-CELGENEUS-USA-2015085136

PATIENT

DRUGS (1)
  1. REVLIMID [Suspect]
     Active Substance: LENALIDOMIDE
     Indication: PRODUCT USED FOR UNKNOWN INDICATION
     Route: 048

REACTIONS (6)
  - Lower respiratory tract infection [Not Recovered/Not Resolved]
  - Pertussis [Unknown]
  - Depressed mood [Unknown]
  - Chest pain [Unknown]
  - Unevaluable event [Unknown]
  - Mood altered [Unknown]
